FAERS Safety Report 7719295-1 (Version None)
Quarter: 2011Q3

REPORT INFORMATION
  Report Type: 
  Country: None (occurrence: None)
  Receive Date: 20110830
  Receipt Date: 20110820
  Transmission Date: 20111222
  Serious: Yes (Hospitalization)
  Sender: FDA-Public Use
  Company Number: CA-JNJFOC-20110810085

PATIENT
  Sex: Male
  Weight: 75 kg

DRUGS (2)
  1. TYLENOL-500 [Concomitant]
  2. REMICADE [Suspect]
     Indication: ANKYLOSING SPONDYLITIS
     Route: 042
     Dates: start: 20100301

REACTIONS (2)
  - ACCIDENTAL EXPOSURE [None]
  - EYE INFLAMMATION [None]
